FAERS Safety Report 4798035-2 (Version None)
Quarter: 2005Q3

REPORT INFORMATION
  Report Type: 
  Country: None (occurrence: None)
  Receive Date: 20050929
  Receipt Date: 20050816
  Transmission Date: 20060218
  Serious: No
  Sender: FDA-Public Use
  Company Number: 05P-163-0308520

PATIENT
  Age: 74 Year
  Sex: Female
  Weight: 65.7716 kg

DRUGS (6)
  1. HUMIRA [Suspect]
     Indication: RHEUMATOID ARTHRITIS
     Dosage: 40 MG, 1 IN 2 WK, SUBCUTANEOUS ; 40 MG, 1 IN 1 M, SUBCUTANEOUS
     Route: 058
     Dates: start: 20040120, end: 20040420
  2. HUMIRA [Suspect]
     Indication: RHEUMATOID ARTHRITIS
     Dosage: 40 MG, 1 IN 2 WK, SUBCUTANEOUS ; 40 MG, 1 IN 1 M, SUBCUTANEOUS
     Route: 058
     Dates: start: 20040420
  3. DARVOCET [Concomitant]
  4. CETIRIZINE HYDROCHLORIDE [Concomitant]
  5. PREDNISONE [Concomitant]
  6. CARBAMAZEPINE [Concomitant]

REACTIONS (3)
  - ARTHRALGIA [None]
  - RHEUMATOID ARTHRITIS [None]
  - RHEUMATOID NODULE [None]
